FAERS Safety Report 8520413-6 (Version None)
Quarter: 2012Q3

REPORT INFORMATION
  Report Type: 
  Country: None (occurrence: None)
  Receive Date: 20120719
  Receipt Date: 20120717
  Transmission Date: 20120928
  Serious: Yes (Death)
  Sender: FDA-Public Use
  Company Number: US-ASTELLAS-2012US006262

PATIENT
  Sex: Female
  Weight: 77 kg

DRUGS (7)
  1. PROGRAF [Suspect]
     Indication: LIVER TRANSPLANT
     Dosage: 5.5 MG, UID/QD
     Route: 048
     Dates: start: 20100423, end: 20111002
  2. MYFORTIC [Concomitant]
     Indication: PRODUCT USED FOR UNKNOWN INDICATION
     Dosage: 720 MG, BID
     Route: 048
     Dates: end: 20111002
  3. BACTRIM DS [Concomitant]
     Indication: PRODUCT USED FOR UNKNOWN INDICATION
     Dosage: 800/160 MG BID
     Route: 048
     Dates: end: 20111002
  4. NORVASC [Concomitant]
     Indication: PRODUCT USED FOR UNKNOWN INDICATION
     Dosage: 10 MG, UID/QD
     Route: 048
     Dates: end: 20111002
  5. ZANTAC [Concomitant]
     Indication: PRODUCT USED FOR UNKNOWN INDICATION
     Dosage: 150 MG, BID
     Route: 048
     Dates: end: 20111002
  6. FOLIC ACID [Concomitant]
     Indication: PRODUCT USED FOR UNKNOWN INDICATION
     Dosage: 2 MG, UID/QD
     Route: 048
     Dates: end: 20111002
  7. DAPSONE [Concomitant]
     Indication: PRODUCT USED FOR UNKNOWN INDICATION
     Dosage: 100 MG, WEEKLY
     Route: 048
     Dates: end: 20111002

REACTIONS (1)
  - MULTI-ORGAN FAILURE [None]
